FAERS Safety Report 8338912-9 (Version None)
Quarter: 2012Q2

REPORT INFORMATION
  Report Type: 
  Country: None (occurrence: None)
  Receive Date: 20120506
  Receipt Date: 20120425
  Transmission Date: 20120825
  Serious: Yes (Hospitalization, Other)
  Sender: FDA-Public Use
  Company Number: DE-MEDIMMUNE-MEDI-0015551

PATIENT
  Age: 2 Month
  Sex: Male
  Weight: 5.02 kg

DRUGS (1)
  1. SYNAGIS [Suspect]
     Dates: start: 20120208, end: 20120405

REACTIONS (2)
  - PNEUMONIA RESPIRATORY SYNCYTIAL VIRAL [None]
  - GASTROENTERITIS ADENOVIRUS [None]
